FAERS Safety Report 7407348-7 (Version None)
Quarter: 2011Q2

REPORT INFORMATION
  Report Type: 
  Country: None (occurrence: None)
  Receive Date: 20110411
  Receipt Date: 20110329
  Transmission Date: 20111010
  Serious: Yes (Hospitalization)
  Sender: FDA-Public Use
  Company Number: US-ELI_LILLY_AND_COMPANY-US201004001683

PATIENT
  Sex: Female

DRUGS (19)
  1. PLAVIX [Concomitant]
     Dosage: 75 MG, UNK
  2. LASIX [Concomitant]
     Dosage: 40 MG, UNK
  3. NORVASC [Concomitant]
     Dosage: 10 MG, UNK
  4. FORTEO [Suspect]
     Indication: OSTEOPOROSIS
     Dosage: 20 UG, QD
  5. FORTEO [Suspect]
     Dosage: 20 UG, QD
  6. VITAMIN B-12 [Concomitant]
     Dosage: 500 MG, UNK
  7. POTASSIUM CHLORIDE [Concomitant]
     Dosage: 20 MEQ, UNK
  8. HYDRALAZINE [Concomitant]
     Dosage: 25 MG, UNK
  9. BUDESONIDE [Concomitant]
     Dosage: UNK, BID
  10. TEGRETOL [Concomitant]
     Dosage: 800 MG, BID
  11. SIMVASTATIN [Concomitant]
     Dosage: 20 MG, UNK
  12. CALCARB WITH VITAMIN D [Concomitant]
     Dosage: UNK, BID
  13. ASPIRIN [Concomitant]
     Dosage: 81 MG, UNK
  14. BENICAR [Concomitant]
     Dosage: 40 MG, UNK
  15. BACLOFEN [Concomitant]
     Dosage: 10 MG, BID
  16. COMBIVENT [Concomitant]
     Dosage: UNK, EVERY 6 HRS
  17. C-VITAMIN [Concomitant]
     Dosage: 1000 MG, QD
  18. SENOKOT [Concomitant]
  19. COREG [Concomitant]
     Dosage: 12.5 MG, BID

REACTIONS (3)
  - NASOPHARYNGITIS [None]
  - CARDIAC FAILURE [None]
  - COUGH [None]
